FAERS Safety Report 5066628-3 (Version None)
Quarter: 2006Q3

REPORT INFORMATION
  Report Type: 
  Country: None (occurrence: None)
  Receive Date: 20060712
  Receipt Date: 20060510
  Transmission Date: 20061208
  Serious: No
  Sender: FDA-Public Use
  Company Number: A03200602937

PATIENT
  Sex: Male

DRUGS (1)
  1. UROXATRAL [Suspect]
     Dosage: 10 MG OD - ORAL
     Route: 048
     Dates: start: 20060509

REACTIONS (4)
  - FEELING ABNORMAL [None]
  - NASAL CONGESTION [None]
  - NASAL DRYNESS [None]
  - NASOPHARYNGITIS [None]
